FAERS Safety Report 11857515 (Version 2)
Quarter: 2016Q3

REPORT INFORMATION
  Report Type: Spontaneous
  Country: IE (occurrence: IE)
  Receive Date: 20151221
  Receipt Date: 20160907
  Transmission Date: 20161109
  Serious: Yes (Other)
  Sender: FDA-Public Use
  Company Number: IE-JNJFOC-20151207856

PATIENT

DRUGS (2)
  1. USTEKINUMAB [Suspect]
     Active Substance: USTEKINUMAB
     Indication: TEMPORAL ARTERITIS
     Dosage: AT WEEK 1 AND WEEK 2 FOLLOWED BY EVERY 12 WEEKS
     Route: 058
  2. USTEKINUMAB [Suspect]
     Active Substance: USTEKINUMAB
     Indication: TEMPORAL ARTERITIS
     Route: 058

REACTIONS (10)
  - Urinary tract infection [Unknown]
  - Lower respiratory tract infection [Unknown]
  - Tinea pedis [Unknown]
  - Tooth abscess [Unknown]
  - Temporal arteritis [Unknown]
  - Off label use [Unknown]
  - Alopecia [Unknown]
  - Therapeutic response unexpected [Unknown]
  - Product use issue [Unknown]
  - Paraesthesia [Unknown]
